FAERS Safety Report 23691447 (Version 3)
Quarter: 2025Q3

REPORT INFORMATION
  Report Type: Spontaneous
  Country: EU (occurrence: EU)
  Receive Date: 20240401
  Receipt Date: 20250918
  Transmission Date: 20251021
  Serious: Yes (Other)
  Sender: AUROBINDO
  Company Number: EU-RECKITT BENCKISER HEALTHCARE INT LIMITED-RB-085236-2024

PATIENT
  Age: 26 Year
  Sex: Female

DRUGS (3)
  1. IBUPROFEN [Suspect]
     Active Substance: IBUPROFEN
     Indication: Pyrexia
     Route: 065
  2. IBUPROFEN [Suspect]
     Active Substance: IBUPROFEN
     Indication: Back pain
  3. IBUPROFEN [Suspect]
     Active Substance: IBUPROFEN
     Indication: Arthralgia

REACTIONS (16)
  - Renal impairment [Recovered/Resolved]
  - Pyrexia [Unknown]
  - Leukopenia [Unknown]
  - Proteinuria [Unknown]
  - Acute kidney injury [Recovered/Resolved]
  - Lymphopenia [Unknown]
  - Hypertrophy [Unknown]
  - Fibroadenoma of breast [Unknown]
  - Focal segmental glomerulosclerosis [Unknown]
  - Parvovirus B19 infection [Unknown]
  - Blood immunoglobulin M [Unknown]
  - Renal tubular necrosis [Unknown]
  - Hypertension [Unknown]
  - Septic shock [Unknown]
  - Multiple organ dysfunction syndrome [Unknown]
  - Abdominal pain [Unknown]
